FAERS Safety Report 19695124 (Version 2)
Quarter: 2021Q3

REPORT INFORMATION
  Report Type: Report from Study
  Country: US (occurrence: US)
  Receive Date: 20210813
  Receipt Date: 20210817
  Transmission Date: 20211014
  Serious: Yes (Other)
  Sender: FDA-Public Use
  Company Number: US-JAZZ-2021-US-014637

PATIENT
  Age: 38 Year
  Sex: Female

DRUGS (1)
  1. XYREM [Suspect]
     Active Substance: SODIUM OXYBATE
     Indication: NARCOLEPSY
     Dosage: 4.5 GRAM, BID
     Route: 048
     Dates: start: 202102

REACTIONS (4)
  - Nephrolithiasis [Not Recovered/Not Resolved]
  - Staring [Unknown]
  - Feeling drunk [Unknown]
  - Memory impairment [Unknown]

NARRATIVE: CASE EVENT DATE: 20210806
